FAERS Safety Report 19621607 (Version 1)
Quarter: 2021Q3

REPORT INFORMATION
  Report Type: Spontaneous
  Country: DE (occurrence: DE)
  Receive Date: 20210728
  Receipt Date: 20210728
  Transmission Date: 20211014
  Serious: Yes (Other)
  Sender: FDA-Public Use
  Company Number: DE-TEVA-2021-DE-1936616

PATIENT
  Age: 65 Year
  Sex: Male
  Weight: 98 kg

DRUGS (12)
  1. NEBIVOLOL. [Interacting]
     Active Substance: NEBIVOLOL
     Indication: TACHYARRHYTHMIA
     Dosage: 10 MILLIGRAM DAILY; NEBIVOLOL 5 MG 1 ? 0 ? 1 ? 0
     Route: 048
     Dates: start: 2000
  2. NEBIVOLOL. [Interacting]
     Active Substance: NEBIVOLOL
     Indication: SUPRAVENTRICULAR TACHYCARDIA
  3. NEBIVOLOL. [Interacting]
     Active Substance: NEBIVOLOL
     Indication: HYPERTENSION
  4. METOPROLOL. [Interacting]
     Active Substance: METOPROLOL
     Indication: ATRIAL FIBRILLATION
  5. SIMVASTATIN. [Suspect]
     Active Substance: SIMVASTATIN
     Indication: ATRIAL FIBRILLATION
     Dosage: 20 MILLIGRAM DAILY; SIMVASTATIN 20 MG 0 ? 0 ? 0 ? 1 (COMPLAINTS IF THERE IS A DEVIATION)
     Route: 048
     Dates: start: 2000
  6. SIMVASTATIN. [Interacting]
     Active Substance: SIMVASTATIN
     Indication: TACHYARRHYTHMIA
  7. METOPROLOL. [Interacting]
     Active Substance: METOPROLOL
     Indication: TACHYARRHYTHMIA
     Route: 048
     Dates: start: 2000
  8. METOPROLOL. [Interacting]
     Active Substance: METOPROLOL
     Indication: SUPRAVENTRICULAR TACHYCARDIA
  9. SIMVASTATIN. [Interacting]
     Active Substance: SIMVASTATIN
     Indication: HYPERTENSION
  10. SIMVASTATIN. [Interacting]
     Active Substance: SIMVASTATIN
     Indication: SUPRAVENTRICULAR TACHYCARDIA
  11. NEBIVOLOL. [Interacting]
     Active Substance: NEBIVOLOL
     Indication: ATRIAL FIBRILLATION
  12. METOPROLOL. [Interacting]
     Active Substance: METOPROLOL
     Indication: HYPERTENSION

REACTIONS (2)
  - Drug interaction [Unknown]
  - Atrial fibrillation [Recovered/Resolved]

NARRATIVE: CASE EVENT DATE: 20200913
